FAERS Safety Report 17983057 (Version 1)
Quarter: 2020Q3

REPORT INFORMATION
  Report Type: Spontaneous
  Country: US (occurrence: US)
  Receive Date: 20200702
  Receipt Date: 20200702
  Transmission Date: 20201103
  Serious: Yes (Hospitalization)
  Sender: FDA-Public Use
  Company Number: None

PATIENT
  Age: 70 Year
  Sex: Female

DRUGS (8)
  1. GLIMEPRIDE [Concomitant]
     Active Substance: GLIMEPIRIDE
  2. ATORVASTATIN [Concomitant]
     Active Substance: ATORVASTATIN
  3. CYANAOCOBALAM [Concomitant]
  4. COSENTYX [Suspect]
     Active Substance: SECUKINUMAB
     Indication: PSORIATIC ARTHROPATHY
     Dosage: ?          OTHER FREQUENCY:Q28D;?
     Route: 058
     Dates: start: 20180517
  5. ASPIRIN. [Concomitant]
     Active Substance: ASPIRIN
  6. ATENOLOL. [Concomitant]
     Active Substance: ATENOLOL
  7. OZEMPIC [Concomitant]
     Active Substance: SEMAGLUTIDE
  8. TIZANIDINE. [Concomitant]
     Active Substance: TIZANIDINE

REACTIONS (4)
  - Fatigue [None]
  - Joint stiffness [None]
  - Pain [None]
  - Post polio syndrome [None]
